FAERS Safety Report 24529066 (Version 1)
Quarter: 2024Q4

REPORT INFORMATION
  Report Type: Spontaneous
  Country: US (occurrence: US)
  Receive Date: 20241021
  Receipt Date: 20241021
  Transmission Date: 20250115
  Serious: Yes (Hospitalization)
  Sender: AMGEN
  Company Number: US-AMGEN-USASP2024203784

PATIENT
  Sex: Female

DRUGS (4)
  1. REPATHA [Suspect]
     Active Substance: EVOLOCUMAB
     Indication: Product used for unknown indication
     Dosage: UNK
     Route: 058
  2. REPATHA [Suspect]
     Active Substance: EVOLOCUMAB
     Dosage: 140 MILLIGRAM, Q2WK
     Route: 058
     Dates: start: 2021
  3. REPATHA [Suspect]
     Active Substance: EVOLOCUMAB
     Dosage: 140 MILLIGRAM, Q2WK
     Route: 058
  4. PRALUENT [Concomitant]
     Active Substance: ALIROCUMAB
     Dosage: UNK

REACTIONS (6)
  - Unevaluable event [Unknown]
  - Hypersomnia [Recovered/Resolved]
  - Influenza [Unknown]
  - Renal disorder [Unknown]
  - Device difficult to use [Unknown]
  - Product dose omission issue [Unknown]
